FAERS Safety Report 9465312 (Version 1)
Quarter: 2013Q3

REPORT INFORMATION
  Report Type: Spontaneous
  Country: AU (occurrence: AU)
  Receive Date: 20130820
  Receipt Date: 20130820
  Transmission Date: 20140515
  Serious: Yes (Life-Threatening)
  Sender: FDA-Public Use
  Company Number: AU-009507513-1308AUS006975

PATIENT
  Age: 56 Year
  Sex: Male
  Weight: 60 kg

DRUGS (4)
  1. BRIDION [Suspect]
     Dosage: 200 MG
     Dates: start: 20130427
  2. DEXAMETHASONE [Concomitant]
     Dosage: 8 MG
     Dates: start: 20130427
  3. DROPERIDOL [Concomitant]
     Dosage: 1MG
     Dates: start: 20130427
  4. KYTRIL [Concomitant]
     Dosage: 1 MG
     Dates: start: 20130427

REACTIONS (1)
  - Circulatory collapse [Recovered/Resolved]
